FAERS Safety Report 6072906-1 (Version None)
Quarter: 2009Q1

REPORT INFORMATION
  Report Type: 
  Country: None (occurrence: None)
  Receive Date: 20090205
  Receipt Date: 20090121
  Transmission Date: 20090719
  Serious: Yes (Death, Life-Threatening)
  Sender: FDA-Public Use
  Company Number: 004256

PATIENT
  Age: 52 Year
  Sex: Male

DRUGS (6)
  1. BUSULFEX [Suspect]
     Indication: STEM CELL TRANSPLANT
     Dosage: 30 ML INTRAVENOUS
     Route: 042
     Dates: start: 20070510, end: 20070513
  2. CYCLOPHOSPHAMIDE [Suspect]
     Dosage: 3400 MG, DAILY DOSE INTRAVENOUS
     Route: 042
     Dates: start: 20070514, end: 20070515
  3. VALPROATE SODIUM [Concomitant]
  4. FILGRASTIM (FILGRASTIM) [Concomitant]
  5. METHOTREXATE [Concomitant]
  6. TACROLIMUS [Concomitant]

REACTIONS (18)
  - ACUTE GRAFT VERSUS HOST DISEASE [None]
  - BLOOD CHLORIDE INCREASED [None]
  - BLOOD POTASSIUM INCREASED [None]
  - BLOOD PRESSURE DECREASED [None]
  - BLOOD SODIUM DECREASED [None]
  - BLOOD SODIUM INCREASED [None]
  - BLOOD URIC ACID INCREASED [None]
  - BONE MARROW TRANSPLANT REJECTION [None]
  - CONTINUOUS HAEMODIAFILTRATION [None]
  - CYSTITIS [None]
  - DEHYDRATION [None]
  - DIABETES INSIPIDUS [None]
  - HYPOALBUMINAEMIA [None]
  - NAUSEA [None]
  - NO THERAPEUTIC RESPONSE [None]
  - PNEUMONIA [None]
  - THROMBOTIC MICROANGIOPATHY [None]
  - WHITE BLOOD CELL COUNT DECREASED [None]
